FAERS Safety Report 23683680 (Version 1)
Quarter: 2024Q1

REPORT INFORMATION
  Report Type: Report from Study
  Country: US (occurrence: None)
  Receive Date: 20240328
  Receipt Date: 20240328
  Transmission Date: 20240410
  Serious: Yes (Other)
  Sender: FDA-Public Use
  Company Number: 2024A068862

PATIENT
  Sex: Male
  Weight: 118.5 kg

DRUGS (21)
  1. CALQUENCE [Suspect]
     Active Substance: ACALABRUTINIB
     Indication: B-cell small lymphocytic lymphoma
     Route: 048
     Dates: start: 20240308
  2. CALQUENCE [Suspect]
     Active Substance: ACALABRUTINIB
     Indication: Lymph nodes scan abnormal
     Route: 048
     Dates: start: 20240308
  3. ELIQUIS [Concomitant]
     Active Substance: APIXABAN
  4. PEPCID [Concomitant]
     Active Substance: FAMOTIDINE
  5. ATORVASTATIN CALCIUM [Concomitant]
     Active Substance: ATORVASTATIN CALCIUM
  6. LANTUS SOLOSTAR [Concomitant]
     Active Substance: INSULIN GLARGINE
  7. NOVOLOG [Concomitant]
     Active Substance: INSULIN ASPART
  8. TROSPIUM [Concomitant]
     Active Substance: TROSPIUM
  9. METOPROLOL [Concomitant]
     Active Substance: METOPROLOL
  10. DIGOX [Concomitant]
     Active Substance: DIGOXIN
  11. LASIX [Concomitant]
     Active Substance: FUROSEMIDE
  12. TUSSIONEX PENNKINETIC [Concomitant]
     Active Substance: CHLORPHENIRAMINE\HYDROCODONE
  13. ACYCLOVIR [Concomitant]
     Active Substance: ACYCLOVIR
  14. ZOFRAN [Concomitant]
     Active Substance: ONDANSETRON HYDROCHLORIDE
  15. SEROQUEL [Concomitant]
     Active Substance: QUETIAPINE FUMARATE
  16. NORCO [Concomitant]
     Active Substance: ACETAMINOPHEN\HYDROCODONE BITARTRATE
  17. MELATONIN [Concomitant]
     Active Substance: MELATONIN
  18. VITAMINS [Concomitant]
     Active Substance: VITAMINS
  19. VITAMIN D3 [Concomitant]
     Active Substance: CHOLECALCIFEROL
  20. VITMAIN C [Concomitant]
  21. SULFAMETHOXAZOLE\TRIMETHOPRIM [Concomitant]
     Active Substance: SULFAMETHOXAZOLE\TRIMETHOPRIM

REACTIONS (2)
  - White blood cell count increased [Not Recovered/Not Resolved]
  - Fatigue [Not Recovered/Not Resolved]
